FAERS Safety Report 9599648 (Version 2)
Quarter: 2013Q4

REPORT INFORMATION
  Report Type: Spontaneous
  Country: US (occurrence: US)
  Receive Date: 20131004
  Receipt Date: 20131004
  Transmission Date: 20140711
  Serious: No
  Sender: FDA-Public Use
  Company Number: US-AMGEN-USASP2013027618

PATIENT
  Age: 54 Year
  Sex: Female

DRUGS (1)
  1. ENBREL [Suspect]
     Indication: RHEUMATOID ARTHRITIS
     Dosage: 50 MG, QWK
     Dates: start: 20120409, end: 20130202

REACTIONS (9)
  - Fatigue [Recovered/Resolved]
  - Asthenia [Recovered/Resolved]
  - Mouth ulceration [Recovered/Resolved]
  - Asthma [Not Recovered/Not Resolved]
  - Nausea [Recovered/Resolved]
  - Diarrhoea [Recovered/Resolved]
  - Herpes virus infection [Not Recovered/Not Resolved]
  - Infection [Recovered/Resolved]
  - Oral herpes [Not Recovered/Not Resolved]
